FAERS Safety Report 10558686 (Version 1)
Quarter: 2014Q4

REPORT INFORMATION
  Report Type: Spontaneous
  Country: US (occurrence: US)
  Receive Date: 20141031
  Receipt Date: 20141031
  Transmission Date: 20150529
  Serious: No
  Sender: FDA-Public Use
  Company Number: US-PFIZER INC-2014298053

PATIENT

DRUGS (1)
  1. CELEBREX [Suspect]
     Active Substance: CELECOXIB
     Indication: PAIN
     Dosage: 1 TAB EVERY 12 HOURS AS NEEDED

REACTIONS (3)
  - Arthralgia [Unknown]
  - Back pain [Unknown]
  - Drug dose omission [Unknown]
